FAERS Safety Report 5306152-3 (Version None)
Quarter: 2007Q2

REPORT INFORMATION
  Report Type: 
  Country: None (occurrence: None)
  Receive Date: 20070424
  Receipt Date: 20070418
  Transmission Date: 20071010
  Serious: Yes (Death)
  Sender: FDA-Public Use
  Company Number: PL-AVENTIS-200614432EU

PATIENT
  Age: 46 Year
  Sex: Male
  Weight: 150 kg

DRUGS (34)
  1. ENOXAPARIN SODIUM [Suspect]
     Route: 058
  2. ENOXAPARIN SODIUM [Suspect]
     Route: 058
  3. DOLCONTRAL [Concomitant]
     Dates: start: 20060810, end: 20060810
  4. MORPHINE SULFATE [Concomitant]
     Dates: start: 20060811, end: 20060811
  5. MORPHINE SULFATE [Concomitant]
     Dates: start: 20060813, end: 20060813
  6. MORPHINE SULFATE [Concomitant]
     Indication: CHEST PAIN
     Dates: start: 20060811, end: 20060811
  7. MORPHINE SULFATE [Concomitant]
     Dates: start: 20060813, end: 20060813
  8. PARACETAMOL [Concomitant]
     Dates: start: 20060811, end: 20060811
  9. DOPAMINE HCL [Concomitant]
     Dates: start: 20060813, end: 20060813
  10. CORDARONE [Concomitant]
     Dates: start: 20060813, end: 20060813
  11. METOCLOPRAMIDE [Concomitant]
     Dates: start: 20060813, end: 20060813
  12. KETONAL                            /00321701/ [Concomitant]
     Indication: CHEST PAIN
     Dates: start: 20060813, end: 20060813
  13. ADRENALINE [Concomitant]
     Dates: start: 20060813, end: 20060813
  14. ADRENALINE [Concomitant]
     Dates: start: 20060813, end: 20060813
  15. ADRENALINE [Concomitant]
     Dates: start: 20060813, end: 20060813
  16. ADRENALINE [Concomitant]
     Indication: RESUSCITATION
     Dates: start: 20060813, end: 20060813
  17. ADRENALINE [Concomitant]
     Dates: start: 20060813, end: 20060813
  18. ADRENALINE [Concomitant]
     Dates: start: 20060813, end: 20060813
  19. HYDROCORTISONE [Concomitant]
     Indication: RESPIRATORY FAILURE
     Dates: start: 20060813, end: 20060813
  20. AMBROXOL [Concomitant]
     Indication: RESPIRATORY FAILURE
     Dates: start: 20060813, end: 20060813
  21. CEFAZOLIN [Concomitant]
     Indication: ANTIBIOTIC PROPHYLAXIS
     Dates: start: 20060813, end: 20060813
  22. ATROPINE SULFATE [Concomitant]
     Dates: start: 20060813, end: 20060813
  23. ORTANOL [Concomitant]
     Route: 048
     Dates: start: 20060813, end: 20060813
  24. GELOFUSINE                         /00523001/ [Concomitant]
     Indication: HYPERTENSION
     Route: 042
     Dates: start: 20060810, end: 20060810
  25. EPHEDRINE HYDROCHLORIDE [Concomitant]
     Indication: HYPERTENSION
     Dates: start: 20060810, end: 20060810
  26. CLEXANE [Concomitant]
     Dates: start: 20060813, end: 20060813
  27. ACESAN [Concomitant]
     Dosage: DOSE: UNKNOWN DOSE
     Dates: start: 20060813, end: 20060813
  28. LEVONOR [Concomitant]
     Dosage: DOSE: UNKNOWN DOSE
     Dates: start: 20060813, end: 20060813
  29. HEPARIN [Concomitant]
     Dosage: DOSE: UNKNOWN DOSE
     Dates: start: 20060813, end: 20060813
  30. MANNITOL 20% [Concomitant]
     Dates: start: 20060813, end: 20060813
  31. BENZODIAZEPINE DERIVATIVES [Concomitant]
     Dosage: DOSE: UNKNOWN DOSE
     Dates: start: 20060813, end: 20060813
  32. MIDAZOLAM HCL [Concomitant]
     Dates: start: 20060813, end: 20060813
  33. NATRIUM BICARBONATE [Concomitant]
     Dates: start: 20060813, end: 20060813
  34. CALCIUM CHLORIDE [Concomitant]
     Dosage: DOSE: UNKNOWN DOSE
     Dates: start: 20060813, end: 20060813

REACTIONS (3)
  - ASTHENIA [None]
  - DYSPNOEA [None]
  - PULMONARY EMBOLISM [None]
